FAERS Safety Report 7322740-7 (Version None)
Quarter: 2011Q1

REPORT INFORMATION
  Report Type: 
  Country: None (occurrence: None)
  Receive Date: 20110216
  Receipt Date: 20110201
  Transmission Date: 20110831
  Serious: Yes (Hospitalization)
  Sender: FDA-Public Use
  Company Number: 2010002281

PATIENT
  Age: 55 Year
  Sex: Male

DRUGS (7)
  1. BISOPROLOL (BISOPROLOL) [Concomitant]
  2. FLUORODEOXYGLUCOSE F18 [Concomitant]
  3. 3'-DEOXY-3'- [18F] FLUOROTHYMIDINE [Concomitant]
  4. GADOPENTETIC ACID (GADOPENTETIC ACID) [Concomitant]
  5. ERLOTINIB (ERLOTINIB) (TABLET) (ERLOTINIB) [Suspect]
     Indication: NON-SMALL CELL LUNG CANCER
     Dosage: (150 MG, QD), ORAL
     Route: 048
     Dates: start: 20100326
  6. BEVACIZUMAB [Suspect]
     Indication: NON-SMALL CELL LUNG CANCER
     Dosage: (15 MG/KG, Q3W), INTRAVENOUS
     Route: 042
     Dates: start: 20100326
  7. PANTOPRAZOLE [Concomitant]

REACTIONS (10)
  - NAUSEA [None]
  - OEDEMA PERIPHERAL [None]
  - HYPERTENSION [None]
  - PURPURA [None]
  - ARTHRALGIA [None]
  - VASCULITIS [None]
  - VOMITING [None]
  - PNEUMONIA [None]
  - PERFORMANCE STATUS DECREASED [None]
  - HYPERTENSIVE CRISIS [None]
